FAERS Safety Report 5083469-1 (Version None)
Quarter: 2006Q3

REPORT INFORMATION
  Report Type: 
  Country: None (occurrence: None)
  Receive Date: 20060818
  Receipt Date: 20060215
  Transmission Date: 20061208
  Serious: Yes (Life-Threatening, Hospitalization)
  Sender: FDA-Public Use
  Company Number: PHBS2006VE02614

PATIENT
  Age: 72 Year
  Sex: Male

DRUGS (3)
  1. ASPIRIN [Concomitant]
     Dosage: UNK, QD
  2. ESTATIN [Concomitant]
     Dosage: UNK, QD
  3. DIOVAN HCT [Suspect]
     Dosage: VALS 160 / HCT 12.5 MG

REACTIONS (3)
  - CEREBROVASCULAR DISORDER [None]
  - DYSARTHRIA [None]
  - HEMIPLEGIA [None]
